FAERS Safety Report 7794504-1 (Version None)
Quarter: 2011Q4

REPORT INFORMATION
  Report Type: 
  Country: None (occurrence: None)
  Receive Date: 20111004
  Receipt Date: 20110929
  Transmission Date: 20120403
  Serious: Yes (Hospitalization)
  Sender: FDA-Public Use
  Company Number: GB-AMGEN-GBRCT2011050571

PATIENT
  Age: 57 Year
  Sex: Male

DRUGS (11)
  1. OXALIPLATIN [Concomitant]
     Indication: GASTROOESOPHAGEAL CANCER
     Dosage: UNK
     Dates: start: 20110608
  2. CAPECITABINE [Concomitant]
     Indication: GASTROOESOPHAGEAL CANCER
     Dosage: UNK
     Dates: start: 20110608
  3. CO-DANTHRAMER [Concomitant]
     Indication: CONSTIPATION
     Dosage: 10 ML, QD
     Dates: start: 20110606
  4. PANITUMUMAB [Suspect]
     Indication: GASTROOESOPHAGEAL CANCER
     Dosage: UNK
     Dates: start: 20110608
  5. MORPHINE SULFATE [Concomitant]
     Indication: PAIN
     Dosage: 30 MG, BID
     Dates: start: 20110501
  6. CYCLIZINE [Concomitant]
     Indication: NAUSEA
     Dosage: UNK UNK, PRN
     Dates: start: 20110501
  7. CIPROFLOXACIN [Concomitant]
     Indication: INFECTION
     Dosage: 500 MG, BID
     Dates: start: 20110601
  8. METRONIDAZOLE [Concomitant]
     Indication: INFECTION
     Dosage: UNK UNK, BID
     Dates: start: 20110601
  9. EPIRUBICIN [Concomitant]
     Indication: GASTROOESOPHAGEAL CANCER
     Dosage: UNK
     Dates: start: 20110608
  10. ACETAMINOPHEN [Concomitant]
     Indication: PAIN
     Dosage: 1 G, TID
     Dates: start: 20110201
  11. OMEPRAZOLE [Concomitant]
     Indication: DYSPEPSIA
     Dosage: 20 MG, QD
     Dates: start: 20110501

REACTIONS (1)
  - FEBRILE NEUTROPENIA [None]
